FAERS Safety Report 7927196-9 (Version None)
Quarter: 2011Q4

REPORT INFORMATION
  Report Type: 
  Country: None (occurrence: None)
  Receive Date: 20111118
  Receipt Date: 20111115
  Transmission Date: 20120403
  Serious: Yes (Hospitalization, Other)
  Sender: FDA-Public Use
  Company Number: US-BAYER-US-2006-026241

PATIENT
  Age: 34 Year
  Sex: Female

DRUGS (7)
  1. BETASERON [Suspect]
     Dosage: 2 MIU, EVERY 2D
     Route: 058
     Dates: start: 20060912
  2. NAPROXEN [Concomitant]
     Dosage: UNK, UNK
  3. PARACETAMOL, HYDROCODONE BITARTRATE [Concomitant]
     Dosage: UNK, UNK
  4. AMITRIPTYLINE HCL [Concomitant]
     Dosage: UNK, UNK
  5. BETASERON [Suspect]
     Indication: RELAPSING-REMITTING MULTIPLE SCLEROSIS
     Dosage: UNK, UNK
     Route: 058
     Dates: start: 20020522, end: 20030930
  6. BETASERON [Suspect]
     Dosage: 8 MIU, QOD
     Route: 058
     Dates: start: 20111007
  7. CLONAZEPAM [Concomitant]
     Dosage: UNK, UNK

REACTIONS (5)
  - URINE ODOUR ABNORMAL [None]
  - LOSS OF CONSCIOUSNESS [None]
  - URINARY TRACT INFECTION [None]
  - FALL [None]
  - MOBILITY DECREASED [None]
